FAERS Safety Report 10188789 (Version 1)
Quarter: 2014Q2

REPORT INFORMATION
  Report Type: Spontaneous
  Country: US (occurrence: None)
  Receive Date: 20140521
  Receipt Date: 20140521
  Transmission Date: 20141212
  Serious: Yes (Other)
  Sender: FDA-Public Use
  Company Number: None

PATIENT
  Age: 37 Year
  Sex: Female
  Weight: 77.11 kg

DRUGS (1)
  1. NEXPLANON [Suspect]

REACTIONS (5)
  - Depression [None]
  - Procedural haemorrhage [None]
  - Complication of device removal [None]
  - Device difficult to use [None]
  - Injury [None]
